FAERS Safety Report 5142397-3 (Version None)
Quarter: 2006Q4

REPORT INFORMATION
  Report Type: 
  Country: None (occurrence: None)
  Receive Date: 20061102
  Receipt Date: 20060911
  Transmission Date: 20070319
  Serious: Yes (Hospitalization)
  Sender: FDA-Public Use
  Company Number: US-BRISTOL-MYERS SQUIBB COMPANY-13506118

PATIENT
  Age: 65 Year
  Sex: Female
  Weight: 62 kg

DRUGS (12)
  1. CETUXIMAB [Suspect]
     Indication: LUNG CANCER METASTATIC
     Route: 042
     Dates: start: 20060823, end: 20060823
  2. CARBOPLATIN [Suspect]
     Indication: LUNG CANCER METASTATIC
     Route: 042
     Dates: start: 20060823, end: 20060823
  3. DOCETAXEL [Suspect]
     Indication: LUNG CANCER METASTATIC
     Route: 042
     Dates: start: 20060823, end: 20060823
  4. BENADRYL [Concomitant]
     Dates: start: 20060823, end: 20060826
  5. DEXAMETHASONE TAB [Concomitant]
     Dates: start: 20060823, end: 20060826
  6. ZOFRAN [Concomitant]
     Dates: start: 20060823, end: 20060826
  7. ALBUTEROL [Concomitant]
     Route: 055
     Dates: start: 20060823, end: 20060828
  8. SODIUM CHLORIDE [Concomitant]
     Dates: start: 20060828, end: 20060910
  9. MEGACE [Concomitant]
     Dates: start: 20060909, end: 20060911
  10. PILOCARPINE [Concomitant]
     Dates: start: 20060909, end: 20060911
  11. DOCUSATE SODIUM + SENNA [Concomitant]
     Dates: start: 20060909, end: 20060911
  12. HYDROCORTISONE [Concomitant]
     Dates: start: 20060823, end: 20060824

REACTIONS (1)
  - DYSPHAGIA [None]
